FAERS Safety Report 7860400-4 (Version None)
Quarter: 2011Q4

REPORT INFORMATION
  Report Type: 
  Country: None (occurrence: None)
  Receive Date: 20111027
  Receipt Date: 20111019
  Transmission Date: 20120403
  Serious: Yes (Other)
  Sender: FDA-Public Use
  Company Number: PHHY2011FR93368

PATIENT
  Sex: Male

DRUGS (3)
  1. GLEEVEC [Suspect]
     Dosage: DOSE WAS DECREASED
  2. GLEEVEC [Suspect]
     Dosage: 400 MG DAILY
     Dates: start: 20020101
  3. GLEEVEC [Suspect]
     Dosage: 600 MG, DAILY

REACTIONS (5)
  - PULMONARY HYPERTENSION [None]
  - MUSCLE SPASMS [None]
  - METASTASES TO LIVER [None]
  - DRUG DEPENDENCE [None]
  - PULMONARY MICROEMBOLI [None]
